FAERS Safety Report 4354054-1 (Version None)
Quarter: 2004Q2

REPORT INFORMATION
  Report Type: 
  Country: None (occurrence: None)
  Receive Date: 20040430
  Receipt Date: 20040407
  Transmission Date: 20050107
  Serious: Yes (Hospitalization)
  Sender: FDA-Public Use
  Company Number: 6008130

PATIENT
  Age: 72 Year
  Sex: Female

DRUGS (8)
  1. CONCOR (BISOPROLOL FUMARATE) [Suspect]
     Indication: HYPERTENSION
     Dosage: 2,5 MG (1-0-0)
     Dates: start: 20020901, end: 20031101
  2. SORTIS (ATORVASTATIN CALCIUM) [Suspect]
     Indication: HYPERCHOLESTEROLAEMIA
     Dosage: 40 MG (0-0-1) ORAL
     Route: 048
     Dates: start: 20000501, end: 20031101
  3. ACETYLSALICYLIC ACID SRT [Suspect]
     Indication: AORTIC VALVE REPLACEMENT
     Dosage: 100 MG (0-1-0)
     Dates: start: 20000501, end: 20031101
  4. ACETYLSALICYLIC ACID SRT [Suspect]
     Indication: CORONARY ARTERY SURGERY
     Dosage: 100 MG (0-1-0)
     Dates: start: 20000501, end: 20031101
  5. XANEF (ENALAPRIL MALEATE) [Suspect]
     Indication: AORTIC VALVE REPLACEMENT
     Dosage: 5 MG ORAL
     Route: 048
     Dates: start: 20020701, end: 20031101
  6. XANEF (ENALAPRIL MALEATE) [Suspect]
     Indication: HYPERTENSION
     Dosage: 5 MG ORAL
     Route: 048
     Dates: start: 20020701, end: 20031101
  7. LEVOTHYROXINE SODIUM [Concomitant]
  8. DOXYCYCLIN (DOXYCYCLINE) [Concomitant]

REACTIONS (8)
  - CHOLESTASIS [None]
  - CHRONIC HEPATITIS [None]
  - CONDITION AGGRAVATED [None]
  - HEPATITIS TOXIC [None]
  - INFECTION [None]
  - LIPASE INCREASED [None]
  - PANCYTOPENIA [None]
  - URINARY TRACT INFECTION [None]
